FAERS Safety Report 14224735 (Version 1)
Quarter: 2017Q4

REPORT INFORMATION
  Report Type: Spontaneous
  Country: US (occurrence: US)
  Receive Date: 20171127
  Receipt Date: 20171127
  Transmission Date: 20180321
  Serious: No
  Sender: FDA-Public Use
  Company Number: US-ASTRAZENECA-2015SE06331

PATIENT
  Age: 69 Year
  Sex: Male
  Weight: 122.5 kg

DRUGS (1)
  1. BYETTA [Suspect]
     Active Substance: EXENATIDE
     Indication: TYPE 2 DIABETES MELLITUS
     Route: 058
     Dates: start: 2010

REACTIONS (4)
  - Product quality issue [Unknown]
  - Drug dose omission [Unknown]
  - Wrong technique in product usage process [Unknown]
  - Blood glucose increased [Unknown]
